FAERS Safety Report 9564811 (Version 1)
Quarter: 2013Q3

REPORT INFORMATION
  Report Type: Report from Study
  Country: US (occurrence: US)
  Receive Date: 20130930
  Receipt Date: 20130930
  Transmission Date: 20140515
  Serious: Yes (Death)
  Sender: FDA-Public Use
  Company Number: PHEH2013US020270

PATIENT
  Age: 49 Year
  Sex: Male

DRUGS (1)
  1. GLEEVEC [Suspect]
     Dosage: 600 MG, QD
     Route: 048

REACTIONS (2)
  - Death [Fatal]
  - General physical health deterioration [Unknown]
